FAERS Safety Report 5983113-2 (Version None)
Quarter: 2008Q4

REPORT INFORMATION
  Report Type: 
  Country: None (occurrence: None)
  Receive Date: 20081204
  Receipt Date: 20081204
  Transmission Date: 20090506
  Serious: Yes (Life-Threatening, Disabling, Other)
  Sender: FDA-Public Use
  Company Number: None

PATIENT
  Sex: Male
  Weight: 117.9352 kg

DRUGS (1)
  1. ALDARA [Suspect]
     Indication: ACTINIC KERATOSIS
     Dosage: 0.25G TWO TIMES A WEEK TRANSDERMAL
     Route: 062
     Dates: start: 20080314, end: 20080829

REACTIONS (1)
  - NON-HODGKIN'S LYMPHOMA [None]
